FAERS Safety Report 5002690-1 (Version None)
Quarter: 2006Q2

REPORT INFORMATION
  Report Type: 
  Country: None (occurrence: None)
  Receive Date: 20060510
  Receipt Date: 20060427
  Transmission Date: 20061013
  Serious: Yes (Hospitalization)
  Sender: FDA-Public Use
  Company Number: 2006051299

PATIENT
  Age: 51 Year
  Sex: Female
  Weight: 59.7 kg

DRUGS (5)
  1. AZITHROMYCIN [Suspect]
     Indication: NASOPHARYNGITIS
     Dosage: 500 MG (QD), ORAL
     Route: 048
     Dates: start: 20060325, end: 20060328
  2. DASEN (SERRAPEPTASE) [Suspect]
     Indication: NASOPHARYNGITIS
     Dosage: 30 MG (3 IN 1 D), ORAL
     Route: 048
     Dates: start: 20060325, end: 20060328
  3. TRANSAMIN (TRANEXAMIC ACID) [Suspect]
     Indication: NASOPHARYNGITIS
     Dosage: 750 MG (3 IN 1 D), ORAL
     Route: 048
     Dates: start: 20060325, end: 20060328
  4. LOXONIN (LOXOPROFEN SODIUM) [Suspect]
     Indication: NASOPHARYNGITIS
     Dosage: 180 MG (3 IN 1 D), ORAL
     Route: 048
     Dates: start: 20060325, end: 20060328
  5. PL (PYRIDOXAL) [Suspect]
     Indication: NASOPHARYNGITIS
     Dosage: 3 GRAM (3 IN 1 D), ORAL
     Route: 048
     Dates: start: 20060325, end: 20060328

REACTIONS (5)
  - ANAEMIA [None]
  - HAEMATURIA [None]
  - MYALGIA [None]
  - MYOGLOBINURIA [None]
  - PYREXIA [None]
